FAERS Safety Report 12747425 (Version 1)
Quarter: 2016Q3

REPORT INFORMATION
  Report Type: Spontaneous
  Country: US (occurrence: US)
  Receive Date: 20160915
  Receipt Date: 20160915
  Transmission Date: 20161109
  Serious: No
  Sender: FDA-Public Use
  Company Number: US-JAZZ-2016-US-009727

PATIENT
  Age: 43 Year
  Sex: Female

DRUGS (39)
  1. XYREM [Suspect]
     Active Substance: SODIUM OXYBATE
     Dosage: 4.5 G, BID
     Route: 048
     Dates: start: 201407
  2. BUTALBITAL AND ACETAMINOPHEN [Concomitant]
     Active Substance: ACETAMINOPHEN\BUTALBITAL
  3. DESONATE [Concomitant]
     Active Substance: DESONIDE
  4. NEXIUM [Concomitant]
     Active Substance: ESOMEPRAZOLE MAGNESIUM
  5. CEPHALEXIN. [Concomitant]
     Active Substance: CEPHALEXIN
  6. CUTIVATE [Concomitant]
     Active Substance: FLUTICASONE PROPIONATE
  7. EDLUAR [Concomitant]
     Active Substance: ZOLPIDEM TARTRATE
  8. FLUOCINONIDE. [Concomitant]
     Active Substance: FLUOCINONIDE
  9. LOPRESSOR [Concomitant]
     Active Substance: METOPROLOL TARTRATE
  10. MSM [Concomitant]
     Active Substance: DIMETHYL SULFONE
  11. NIZORAL [Concomitant]
     Active Substance: KETOCONAZOLE
  12. XYREM [Suspect]
     Active Substance: SODIUM OXYBATE
     Indication: NARCOLEPSY
     Dosage: 3 G, BID
     Route: 048
     Dates: start: 200808, end: 200809
  13. AUGMENTIN [Concomitant]
     Active Substance: AMOXICILLIN\CLAVULANATE POTASSIUM
  14. SONATA [Concomitant]
     Active Substance: ZALEPLON
  15. AMBIEN [Concomitant]
     Active Substance: ZOLPIDEM TARTRATE
  16. TIZANIDINE. [Concomitant]
     Active Substance: TIZANIDINE
  17. XYREM [Suspect]
     Active Substance: SODIUM OXYBATE
     Indication: CATAPLEXY
     Dosage: 3.75 G, BID
     Route: 048
     Dates: start: 200809, end: 200810
  18. XYREM [Suspect]
     Active Substance: SODIUM OXYBATE
     Dosage: 3.75 G, BID
     Route: 048
     Dates: start: 200910, end: 200912
  19. DIAZEPAM. [Concomitant]
     Active Substance: DIAZEPAM
  20. CLONAZEPAM. [Concomitant]
     Active Substance: CLONAZEPAM
  21. SAVELLA [Concomitant]
     Active Substance: MILNACIPRAN HYDROCHLORIDE
  22. SEROQUEL [Concomitant]
     Active Substance: QUETIAPINE FUMARATE
  23. SUCRALFATE. [Concomitant]
     Active Substance: SUCRALFATE
  24. TRAMADOL HCL [Concomitant]
     Active Substance: TRAMADOL HYDROCHLORIDE
  25. FLORASTOR [Concomitant]
     Active Substance: SACCHAROMYCES CEREVISIAE
  26. PINDOLOL. [Concomitant]
     Active Substance: PINDOLOL
  27. VITAMIN D2 [Concomitant]
     Active Substance: ERGOCALCIFEROL
  28. XYREM [Suspect]
     Active Substance: SODIUM OXYBATE
     Dosage: 4.5 G, BID
     Route: 048
     Dates: start: 200810, end: 2009
  29. CHLORDIAZEPOXIDE. [Concomitant]
     Active Substance: CHLORDIAZEPOXIDE
  30. CELEBREX [Concomitant]
     Active Substance: CELECOXIB
  31. GABAPENTIN. [Concomitant]
     Active Substance: GABAPENTIN
  32. NUVIGIL [Concomitant]
     Active Substance: ARMODAFINIL
  33. ONDANSETRON HCL [Concomitant]
     Active Substance: ONDANSETRON HYDROCHLORIDE
  34. METRONIDAZOLE. [Concomitant]
     Active Substance: METRONIDAZOLE
  35. MULTI VITAMIN [Concomitant]
     Active Substance: VITAMINS
  36. ORACEA [Concomitant]
     Active Substance: DOXYCYCLINE
  37. XYREM [Suspect]
     Active Substance: SODIUM OXYBATE
     Dosage: DOSE ADJUSTMENTS
     Route: 048
  38. FLONASE [Concomitant]
     Active Substance: FLUTICASONE PROPIONATE
  39. LORTAB [Concomitant]
     Active Substance: ACETAMINOPHEN\HYDROCODONE BITARTRATE

REACTIONS (1)
  - Sinusitis [Not Recovered/Not Resolved]

NARRATIVE: CASE EVENT DATE: 201512
